FAERS Safety Report 9861789 (Version 2)
Quarter: 2014Q1

REPORT INFORMATION
  Report Type: Spontaneous
  Country: US (occurrence: US)
  Receive Date: 20140203
  Receipt Date: 20140220
  Transmission Date: 20141002
  Serious: Yes (Other)
  Sender: FDA-Public Use
  Company Number: US-RB-062628-14

PATIENT
  Sex: Male

DRUGS (1)
  1. MUCINEX DM MAXIMUM STRENGTH [Suspect]
     Indication: PRODUCT USED FOR UNKNOWN INDICATION
     Dosage: 1 TABLET EVERY 12 HOURS, TOTAL AMOUNT USED: 5, PATIENT LAST USED THE PRODUCT ON 24-JAN-2014 MORNING.
     Route: 048
     Dates: start: 20140122

REACTIONS (1)
  - Anxiety [Not Recovered/Not Resolved]
